FAERS Safety Report 17706576 (Version 1)
Quarter: 2020Q2

REPORT INFORMATION
  Report Type: Spontaneous
  Country: US (occurrence: US)
  Receive Date: 20200424
  Receipt Date: 20200424
  Transmission Date: 20200714
  Serious: No
  Sender: FDA-Public Use
  Company Number: US-TEVA-2020-US-1224899

PATIENT
  Age: 42 Year
  Sex: Female

DRUGS (3)
  1. MORPHINE [Concomitant]
     Active Substance: MORPHINE
     Dosage: LONG ACTING; 15 MG
  2. FENTORA [Suspect]
     Active Substance: FENTANYL CITRATE
     Indication: TUMOUR PAIN
     Dosage: 800 MICROGRAM DAILY;
     Route: 002
  3. FENTORA [Suspect]
     Active Substance: FENTANYL CITRATE
     Indication: TUMOUR COMPRESSION

REACTIONS (2)
  - Pain [Not Recovered/Not Resolved]
  - Therapy interrupted [Unknown]

NARRATIVE: CASE EVENT DATE: 202004
